FAERS Safety Report 20431427 (Version 1)
Quarter: 2022Q1

REPORT INFORMATION
  Report Type: Report from Study
  Country: FR (occurrence: FR)
  Receive Date: 20220204
  Receipt Date: 20220204
  Transmission Date: 20220423
  Serious: Yes (Disabling)
  Sender: FDA-Public Use
  Company Number: FR-SERVIER-S19006372

PATIENT

DRUGS (22)
  1. PEGASPARGASE [Suspect]
     Active Substance: PEGASPARGASE
     Indication: Acute lymphocytic leukaemia
     Dosage: 690 U/L
     Dates: start: 20190402, end: 20190416
  2. PEGASPARGASE [Suspect]
     Active Substance: PEGASPARGASE
     Dosage: 727.5 UNK
     Dates: start: 20190507
  3. VINCRISTINE SULFATE [Suspect]
     Active Substance: VINCRISTINE SULFATE
     Indication: Acute lymphocytic leukaemia
     Dosage: ON D8, D15, D22, D29, D1 OF CONSOLIDATION
     Route: 042
     Dates: start: 20190328, end: 20190429
  4. VINCRISTINE SULFATE [Suspect]
     Active Substance: VINCRISTINE SULFATE
     Dosage: 0.8 UNK, QD, ON D1
     Route: 042
     Dates: start: 20190429, end: 20190429
  5. METHOTREXATE [Suspect]
     Active Substance: METHOTREXATE
     Indication: Acute lymphocytic leukaemia
     Dosage: 10 MG, QD, ON D9, D13, D18, D24, D2 OF CONSOLIDATION
     Route: 037
     Dates: start: 20190330
  6. METHOTREXATE [Suspect]
     Active Substance: METHOTREXATE
     Dosage: 10 MG, QD, D8, D15, D22
     Route: 048
     Dates: start: 20190507, end: 20190520
  7. MERCAPTOPURINE [Suspect]
     Active Substance: MERCAPTOPURINE
     Indication: Acute lymphocytic leukaemia
     Dosage: 1.4 ML, QD, D1 TO D21
     Dates: start: 20190429
  8. T UNSPECIFIED [Concomitant]
     Indication: Acute lymphocytic leukaemia
     Dosage: 3.5 MG, QD, D10 TO D21
     Route: 048
     Dates: start: 20190329, end: 20190406
  9. T UNSPECIFIED [Concomitant]
     Dosage: 3.4 MG, QD, D1 TO D9
     Route: 042
     Dates: start: 20190407, end: 20190416
  10. T UNSPECIFIED [Concomitant]
     Dosage: 3.4 MG DAILY ON D2
     Route: 037
     Dates: start: 20190430
  11. TN UNSPECIFIED [Concomitant]
     Indication: Product used for unknown indication
     Dosage: UNK
     Route: 065
  12. TN UNSPECIFIED [Concomitant]
     Indication: Product used for unknown indication
     Dosage: UNK
     Route: 065
  13. TN UNSPECIFIED [Concomitant]
     Indication: Product used for unknown indication
     Dosage: UNK
     Route: 065
  14. TN UNSPECIFIED [Concomitant]
     Indication: Product used for unknown indication
     Dosage: UNK
     Route: 065
  15. TN UNSPECIFIED [Concomitant]
     Indication: Product used for unknown indication
     Dosage: UNK
     Route: 065
  16. HYDROXYZINE HYDROCHLORIDE [Concomitant]
     Active Substance: HYDROXYZINE HYDROCHLORIDE
     Indication: Product used for unknown indication
     Dosage: UNK
     Route: 065
  17. TN UNSPECIFIED [Concomitant]
     Indication: Acute lymphocytic leukaemia
     Dosage: UNK
     Route: 065
  18. TN UNSPECIFIED [Concomitant]
     Indication: Acute lymphocytic leukaemia
     Dosage: UNK
     Route: 065
  19. TN UNSPECIFIED [Concomitant]
     Indication: Product used for unknown indication
     Dosage: UNK
     Route: 065
  20. TN UNSPECIFIED [Concomitant]
     Indication: Product used for unknown indication
     Dosage: UNK
     Route: 065
  21. TN UNSPECIFIED [Concomitant]
     Indication: Product used for unknown indication
     Dosage: UNK
     Route: 065
  22. BACTRIM [Concomitant]
     Active Substance: SULFAMETHOXAZOLE\TRIMETHOPRIM
     Indication: Product used for unknown indication
     Dosage: UNK
     Route: 065

REACTIONS (1)
  - Paralysis [Recovered/Resolved]

NARRATIVE: CASE EVENT DATE: 20190429
